FAERS Safety Report 7367224-5 (Version None)
Quarter: 2011Q1

REPORT INFORMATION
  Report Type: 
  Country: None (occurrence: None)
  Receive Date: 20110310
  Receipt Date: 20110224
  Transmission Date: 20110831
  Serious: Yes (Other)
  Sender: FDA-Public Use
  Company Number: 1000019112

PATIENT
  Age: 63 Year
  Sex: Female

DRUGS (10)
  1. INDERAL LA (PROPRANOLOL HYDROCHLORIDE) (PROPRANOLOL HYDROCHLORIDE) [Concomitant]
  2. ASA (ACETYLSALICYLIC ACID) (ACETYLSALICYLIC ACID) [Concomitant]
  3. OXAZEPAM (OXAZEPAM) (OXAZEPAM) [Concomitant]
  4. DESYREL (TRAZODONE HYDROCHLORIDE) (TRAZODONE HYDROCHLORIDE) [Concomitant]
  5. CELEXA [Suspect]
     Indication: DEPRESSION
     Dosage: (20 MG,ONCE),ORAL
     Route: 048
     Dates: start: 20110224, end: 20110224
  6. ESTRACE (ESTRADIOL) (ESTRADIOL) [Concomitant]
  7. ALDACTAZIDE(SPIRONOLACTONE, HYDROCHLOROTHIAZIDE) (SPIRONOLACTONE, HYDR [Concomitant]
  8. CITALOPRAM (CITALOPRAM HYDROCHLORIDE) (CITALOPRAM HYDROCHLORIDE) [Concomitant]
  9. NORVASC [Concomitant]
  10. NASONEX (MOMETASONE FUROATE) (MOMETASONE FUROATE) [Concomitant]

REACTIONS (5)
  - BLOOD PRESSURE DIASTOLIC DECREASED [None]
  - DYSPNOEA [None]
  - ERYTHEMA [None]
  - ANAPHYLACTIC SHOCK [None]
  - ANAPHYLACTOID REACTION [None]
